FAERS Safety Report 7634129-1 (Version None)
Quarter: 2011Q3

REPORT INFORMATION
  Report Type: 
  Country: None (occurrence: None)
  Receive Date: 20110725
  Receipt Date: 20110715
  Transmission Date: 20111222
  Serious: Yes (Hospitalization, Disabling)
  Sender: FDA-Public Use
  Company Number: PL-VERTEX PHARMACEUTICALS INC.-AE-2011-000512

PATIENT
  Sex: Male
  Weight: 65 kg

DRUGS (7)
  1. RIBAVIRIN [Suspect]
     Indication: HEPATITIS C
     Dosage: 400 MG AM, 600 MG PM
     Route: 048
     Dates: start: 20110419, end: 20110529
  2. NEBIVOLOLUM [Concomitant]
     Indication: HYPERTENSION
     Route: 048
  3. RIBAVIRIN [Suspect]
     Route: 048
     Dates: start: 20110530, end: 20110713
  4. RIBAVIRIN [Suspect]
     Route: 048
     Dates: start: 20110714, end: 20110714
  5. VX-950 [Suspect]
     Indication: HEPATITIS C
     Route: 048
     Dates: start: 20110419, end: 20110711
  6. LISINOPRYL [Concomitant]
     Indication: HYPERTENSION
     Route: 048
  7. PEGINTERFERON ALFA-2A [Suspect]
     Indication: HEPATITIS C
     Route: 058
     Dates: start: 20110419

REACTIONS (2)
  - RENAL FAILURE [None]
  - ANAEMIA [None]
